FAERS Safety Report 17463525 (Version 1)
Quarter: 2020Q1

REPORT INFORMATION
  Report Type: Spontaneous
  Country: US (occurrence: US)
  Receive Date: 20200226
  Receipt Date: 20200226
  Transmission Date: 20200409
  Serious: Yes (Hospitalization, Other)
  Sender: FDA-Public Use
  Company Number: US-ACCORD-173839

PATIENT
  Age: 70 Year
  Sex: Female

DRUGS (1)
  1. ATORVASTATIN/ATORVASTATIN CALCIUM [Suspect]
     Active Substance: ATORVASTATIN CALCIUM
     Indication: PRODUCT USED FOR UNKNOWN INDICATION

REACTIONS (4)
  - Overlap syndrome [Recovering/Resolving]
  - Drug-induced liver injury [Recovering/Resolving]
  - Primary biliary cholangitis [Recovering/Resolving]
  - Autoimmune hepatitis [Recovering/Resolving]
